FAERS Safety Report 24737648 (Version 3)
Quarter: 2025Q1

REPORT INFORMATION
  Report Type: Report from Study
  Country: MX (occurrence: MX)
  Receive Date: 20241216
  Receipt Date: 20250313
  Transmission Date: 20250408
  Serious: Yes (Hospitalization)
  Sender: BIOVITRUM
  Company Number: MX-AstraZeneca-CH-00763568A

PATIENT
  Age: 11 Week
  Sex: Male
  Weight: 4.63 kg

DRUGS (8)
  1. PALIVIZUMAB [Suspect]
     Active Substance: PALIVIZUMAB
     Indication: Antiviral prophylaxis
     Route: 030
     Dates: start: 20241205, end: 20241205
  2. PALIVIZUMAB [Suspect]
     Active Substance: PALIVIZUMAB
     Route: 030
  3. PALIVIZUMAB [Suspect]
     Active Substance: PALIVIZUMAB
     Route: 030
     Dates: start: 20250206, end: 20250206
  4. POLY VI SOL [Concomitant]
     Indication: Product used for unknown indication
     Dates: start: 20241116
  5. POLY VI SOL [Concomitant]
     Dates: start: 20241212
  6. HYDROCHLOROTHIAZIDE [Concomitant]
     Active Substance: HYDROCHLOROTHIAZIDE
     Indication: Product used for unknown indication
     Dates: start: 20241116
  7. SPIRONOLACTONE [Concomitant]
     Active Substance: SPIRONOLACTONE
     Indication: Product used for unknown indication
     Dates: start: 20241116
  8. FLUTICASONE [Concomitant]
     Active Substance: FLUTICASONE
     Indication: Inflammation
     Dates: start: 20241116

REACTIONS (3)
  - Crying [Recovered/Resolved]
  - Pain in extremity [Recovered/Resolved]
  - Irritability [Recovered/Resolved]

NARRATIVE: CASE EVENT DATE: 20241205
